FAERS Safety Report 8187714-5 (Version None)
Quarter: 2012Q1

REPORT INFORMATION
  Report Type: 
  Country: None (occurrence: None)
  Receive Date: 20120306
  Receipt Date: 20120119
  Transmission Date: 20120608
  Serious: No
  Sender: FDA-Public Use
  Company Number: US-GLAXOSMITHKLINE-A0962417A

PATIENT
  Age: 14 Year
  Sex: Male

DRUGS (5)
  1. RITALIN [Concomitant]
  2. CONCERTA [Concomitant]
  3. LAMICTAL [Suspect]
     Indication: PARTIAL SEIZURES
     Dosage: 50MG TWICE PER DAY
     Route: 048
     Dates: start: 20111101
  4. DILANTIN [Concomitant]
  5. ABILIFY [Concomitant]

REACTIONS (1)
  - RASH [None]
